FAERS Safety Report 7590613-0 (Version None)
Quarter: 2011Q3

REPORT INFORMATION
  Report Type: 
  Country: None (occurrence: None)
  Receive Date: 20110705
  Receipt Date: 20110629
  Transmission Date: 20111222
  Serious: Yes (Hospitalization)
  Sender: FDA-Public Use
  Company Number: ZA-PFIZER INC-2011139318

PATIENT
  Age: 36 Year
  Sex: Female

DRUGS (4)
  1. ZOLOFT [Suspect]
     Dosage: 100 MG, UNK
     Route: 048
     Dates: start: 20101117
  2. SEROQUEL [Concomitant]
     Dosage: 50 MG, 1X/DAY AT NIGHT
     Dates: start: 20101117
  3. ZOLOFT [Suspect]
     Dosage: 75 MG, UNK
     Route: 048
     Dates: start: 20100818
  4. ZOLOFT [Suspect]
     Dosage: 50 MG, UNK
     Route: 048
     Dates: start: 20090610

REACTIONS (1)
  - PREMATURE SEPARATION OF PLACENTA [None]
